FAERS Safety Report 23883075 (Version 2)
Quarter: 2024Q2

REPORT INFORMATION
  Report Type: Spontaneous
  Country: SY (occurrence: SY)
  Receive Date: 20240522
  Receipt Date: 20240529
  Transmission Date: 20240716
  Serious: Yes (Other)
  Sender: FDA-Public Use
  Company Number: None

PATIENT
  Age: 45 Year
  Sex: Male

DRUGS (3)
  1. MYCOPHENOLATE MOFETIL [Suspect]
     Active Substance: MYCOPHENOLATE MOFETIL
     Indication: Immunosuppressant drug therapy
     Dosage: UNK
     Route: 048
  2. TACROLIMUS [Suspect]
     Active Substance: TACROLIMUS
     Indication: Immunosuppressant drug therapy
     Dosage: UNK
     Route: 048
  3. PREDNISOLONE [Suspect]
     Active Substance: PREDNISOLONE
     Indication: Immunosuppressant drug therapy
     Dosage: UNK
     Route: 048

REACTIONS (6)
  - Metastatic malignant melanoma [Unknown]
  - Malignant melanoma [Unknown]
  - Malignant melanoma stage II [Unknown]
  - Squamous cell carcinoma [Unknown]
  - Transplant rejection [Unknown]
  - Pyogenic granuloma [Unknown]
